FAERS Safety Report 12503532 (Version 1)
Quarter: 2016Q2

REPORT INFORMATION
  Report Type: Spontaneous
  Country: US (occurrence: None)
  Receive Date: 20160627
  Receipt Date: 20160627
  Transmission Date: 20160815
  Serious: Yes (Other)
  Sender: FDA-Public Use
  Company Number: None

PATIENT
  Age: 48 Year
  Sex: Female
  Weight: 80.74 kg

DRUGS (7)
  1. CLONAZEPAM. [Concomitant]
     Active Substance: CLONAZEPAM
  2. SURFAFED PE [Concomitant]
  3. AFRIN NO DRIP SEVERE CONGESTION [Suspect]
     Active Substance: OXYMETAZOLINE HYDROCHLORIDE
     Indication: NASAL CONGESTION
     Dosage: 2 SPRAY(S) AT BEDTIME INHALATION
     Route: 055
     Dates: start: 20160623, end: 20160623
  4. MELATONN [Concomitant]
  5. TYLENOL [Concomitant]
     Active Substance: ACETAMINOPHEN
  6. BENADRYL [Concomitant]
     Active Substance: DIPHENHYDRAMINE HYDROCHLORIDE
  7. USANA REV3 [Concomitant]

REACTIONS (5)
  - Anxiety [None]
  - Insomnia [None]
  - Heart rate increased [None]
  - Restlessness [None]
  - Palpitations [None]

NARRATIVE: CASE EVENT DATE: 20160624
